FAERS Safety Report 22276019 (Version 1)
Quarter: 2023Q2

REPORT INFORMATION
  Report Type: Spontaneous
  Country: US (occurrence: None)
  Receive Date: 20230501
  Receipt Date: 20230501
  Transmission Date: 20230722
  Serious: Yes (Other)
  Sender: FDA-Public Use
  Company Number: None

PATIENT
  Age: 33 Year
  Sex: Female
  Weight: 94.5 kg

DRUGS (6)
  1. ABSORICA [Suspect]
     Active Substance: ISOTRETINOIN
     Indication: Acne
  2. BIRTH CONTROL [Concomitant]
  3. IMITREX [Concomitant]
     Active Substance: SUMATRIPTAN SUCCINATE
  4. SPIRONOLACTONE [Concomitant]
     Active Substance: SPIRONOLACTONE
  5. ACCUTANE [Concomitant]
     Active Substance: ISOTRETINOIN
  6. WOMEN^S ONE A DAY MULTI VITAMIN [Concomitant]

REACTIONS (2)
  - Heavy menstrual bleeding [None]
  - Pain [None]

NARRATIVE: CASE EVENT DATE: 20230501
